FAERS Safety Report 5359604-4 (Version None)
Quarter: 2007Q2

REPORT INFORMATION
  Report Type: 
  Country: None (occurrence: None)
  Receive Date: 20070530
  Receipt Date: 20061031
  Transmission Date: 20071010
  Serious: Yes (Hospitalization)
  Sender: FDA-Public Use
  Company Number: US200606002205

PATIENT
  Age: 34 Year
  Sex: Male
  Weight: 63.5 kg

DRUGS (5)
  1. ZYPREXA [Suspect]
     Indication: SCHIZOPHRENIA
     Dosage: 10 MG,
     Dates: start: 20001208, end: 20030627
  2. SEROQUEL/UNK/ (QUETIAPINE FUMARATE) [Concomitant]
  3. GEODON [Concomitant]
  4. HALDOL SOLUTAB [Concomitant]
  5. PAXIL [Concomitant]

REACTIONS (3)
  - DIABETES MELLITUS [None]
  - DIABETES MELLITUS INADEQUATE CONTROL [None]
  - HYPERGLYCAEMIA [None]
